FAERS Safety Report 5897208-5 (Version None)
Quarter: 2008Q3

REPORT INFORMATION
  Report Type: 
  Country: None (occurrence: None)
  Receive Date: 20080923
  Receipt Date: 20080908
  Transmission Date: 20090109
  Serious: Yes (Death, Hospitalization)
  Sender: FDA-Public Use
  Company Number: KADN20080336

PATIENT
  Age: 22 Year
  Sex: Male

DRUGS (1)
  1. MORPHINE [Suspect]
     Dates: end: 20050101

REACTIONS (3)
  - ANOXIC ENCEPHALOPATHY [None]
  - BRAIN DEATH [None]
  - LOSS OF CONSCIOUSNESS [None]
